FAERS Safety Report 5167178-6 (Version None)
Quarter: 2006Q4

REPORT INFORMATION
  Report Type: 
  Country: None (occurrence: None)
  Receive Date: 20061130
  Receipt Date: 20061120
  Transmission Date: 20070319
  Serious: Yes (Other)
  Sender: FDA-Public Use
  Company Number: 15210

PATIENT
  Age: 26 Year
  Sex: Male

DRUGS (1)
  1. CYTARABINE [Suspect]
     Indication: ACUTE MYELOID LEUKAEMIA
     Dosage: 3 G/M2 BID

REACTIONS (3)
  - GRAND MAL CONVULSION [None]
  - METABOLIC DISORDER [None]
  - NEUROTOXICITY [None]
